FAERS Safety Report 14845831 (Version 1)
Quarter: 2018Q2

REPORT INFORMATION
  Report Type: Spontaneous
  Country: JP (occurrence: JP)
  Receive Date: 20180504
  Receipt Date: 20180504
  Transmission Date: 20180711
  Serious: Yes (Other)
  Sender: FDA-Public Use
  Company Number: JP-ALKEM LABORATORIES LIMITED-JP-ALKEM-2018-02787

PATIENT
  Age: 36 Year
  Sex: Female

DRUGS (2)
  1. OLANZAPINE. [Suspect]
     Active Substance: OLANZAPINE
     Indication: ANOREXIA NERVOSA
     Dosage: 2.5 MG, QD
     Route: 065
  2. PAROXETINE. [Suspect]
     Active Substance: PAROXETINE
     Indication: ANOREXIA NERVOSA
     Dosage: 20 MG, QD
     Route: 065

REACTIONS (1)
  - Hyperinsulinaemic hypoglycaemia [Recovered/Resolved]
